FAERS Safety Report 8295914-9 (Version None)
Quarter: 2012Q2

REPORT INFORMATION
  Report Type: 
  Country: None (occurrence: None)
  Receive Date: 20120418
  Receipt Date: 20120404
  Transmission Date: 20120825
  Serious: Yes (Hospitalization)
  Sender: FDA-Public Use
  Company Number: US-GLAXOSMITHKLINE-A0972457A

PATIENT
  Age: 67 Year
  Sex: Male
  Weight: 83.1 kg

DRUGS (12)
  1. HYCODAN [Concomitant]
  2. BENADRYL [Concomitant]
     Dosage: 25MG TWICE PER DAY
     Route: 048
  3. CALCIUM CARBONATE [Concomitant]
  4. ACYCLOVIR [Concomitant]
  5. TESSALON [Concomitant]
  6. ASPIRIN [Concomitant]
     Dosage: 81MG PER DAY
     Route: 048
  7. SIMVASTATIN [Concomitant]
  8. CIPROFLOXACIN HYDROCHLORIDE [Concomitant]
  9. OFATUMUMAB [Suspect]
     Indication: CHRONIC LYMPHOCYTIC LEUKAEMIA
     Dosage: 2000MG CYCLIC
     Route: 042
     Dates: start: 20120213
  10. POTASSIUM [Concomitant]
  11. LORAZEPAM [Concomitant]
     Indication: NAUSEA
     Dosage: 1MG AS REQUIRED
     Route: 048
  12. ALLOPURINOL [Concomitant]

REACTIONS (1)
  - FEBRILE NEUTROPENIA [None]
